FAERS Safety Report 10239311 (Version 1)
Quarter: 2014Q2

REPORT INFORMATION
  Report Type: Spontaneous
  Country: CA (occurrence: CA)
  Receive Date: 20140616
  Receipt Date: 20140616
  Transmission Date: 20141212
  Serious: Yes (Hospitalization)
  Sender: FDA-Public Use
  Company Number: CA-BRISTOL-MYERS SQUIBB COMPANY-20963575

PATIENT
  Age: 82 Year
  Sex: Female

DRUGS (4)
  1. ELIQUIS [Suspect]
     Dosage: 5MG ON 04JUN14 (EVE) AND 05JUN14(MORN)
  2. DIGOXIN [Concomitant]
  3. LEVOTHYROXINE [Concomitant]
  4. AMLODIPINE [Concomitant]

REACTIONS (2)
  - Multiple fractures [Unknown]
  - Drug administration error [Unknown]
